FAERS Safety Report 8402954-5 (Version None)
Quarter: 2012Q2

REPORT INFORMATION
  Report Type: 
  Country: None (occurrence: None)
  Receive Date: 20120601
  Receipt Date: 20120528
  Transmission Date: 20120825
  Serious: Yes (Other)
  Sender: FDA-Public Use
  Company Number: JP-GLAXOSMITHKLINE-B0803889A

PATIENT
  Age: 26 Year
  Sex: Female

DRUGS (11)
  1. PLAVIX [Suspect]
     Indication: EPILEPSY
     Dosage: 75MG PER DAY
     Route: 048
  2. PHENYTOIN [Suspect]
     Indication: EPILEPSY
     Dosage: 200MG PER DAY
     Route: 048
  3. THEOPHYLLINE [Suspect]
     Indication: ASTHMA
     Dosage: 400MG PER DAY
     Route: 065
  4. MONTELUKAST SODIUM [Suspect]
     Indication: ASTHMA
     Dosage: 10MG PER DAY
     Route: 048
  5. VITAMIN K TAB [Suspect]
     Indication: HAEMORRHAGE PROPHYLAXIS
     Dosage: 10MG PER DAY
     Route: 048
  6. DIAZEPAM [Suspect]
     Indication: CONVULSION
     Route: 065
  7. GENERAL ANESTHESIA [Suspect]
     Route: 065
  8. HEPARIN CALCIUM [Suspect]
     Indication: PRODUCT USED FOR UNKNOWN INDICATION
     Dosage: 15IU3 PER DAY
     Route: 058
  9. FLUTICASONE PROPIONATE/SALMETEROL [Suspect]
     Indication: ASTHMA
     Route: 055
  10. MAGNESIUM SULFATE [Suspect]
     Route: 065
  11. PREDNISOLONE [Suspect]
     Indication: ASTHMA
     Dosage: 5MG PER DAY
     Route: 065

REACTIONS (11)
  - MATERNAL EXPOSURE DURING PREGNANCY [None]
  - GRAND MAL CONVULSION [None]
  - ATELECTASIS [None]
  - OXYGEN SATURATION DECREASED [None]
  - PNEUMONIA ASPIRATION [None]
  - PLACENTAL DISORDER [None]
  - SPUTUM RETENTION [None]
  - PLACENTAL INFARCTION [None]
  - CAESAREAN SECTION [None]
  - ANAEMIA [None]
  - PYREXIA [None]
